FAERS Safety Report 15604188 (Version 1)
Quarter: 2018Q4

REPORT INFORMATION
  Report Type: Spontaneous
  Country: US (occurrence: US)
  Receive Date: 20181110
  Receipt Date: 20181110
  Transmission Date: 20190205
  Serious: No
  Sender: FDA-Public Use
  Company Number: US-BIOGEN-2018BI00628916

PATIENT
  Age: 39 Year
  Sex: Female
  Weight: 204.3 kg

DRUGS (2)
  1. TECFIDERA [Suspect]
     Active Substance: DIMETHYL FUMARATE
     Indication: MULTIPLE SCLEROSIS
     Dosage: MAINTENANCE DOSE
     Route: 048
     Dates: start: 20181025
  2. SAXENDA [Concomitant]
     Active Substance: LIRAGLUTIDE
     Route: 065

REACTIONS (4)
  - Flushing [Recovered/Resolved]
  - Weight loss poor [Recovered/Resolved]
  - Product dose omission [Recovered/Resolved]
  - Multiple sclerosis relapse [Recovered/Resolved]

NARRATIVE: CASE EVENT DATE: 20181025
